FAERS Safety Report 20364355 (Version 1)
Quarter: 2022Q1

REPORT INFORMATION
  Report Type: Spontaneous
  Country: US (occurrence: None)
  Receive Date: 20220121
  Receipt Date: 20220121
  Transmission Date: 20220423
  Serious: No
  Sender: FDA-Public Use
  Company Number: None

PATIENT
  Sex: Male

DRUGS (1)
  1. DROXIDOPA [Suspect]
     Active Substance: DROXIDOPA
     Indication: Orthostatic hypotension
     Dosage: 600MG TID ORAL?
     Route: 048
     Dates: start: 202201

REACTIONS (1)
  - COVID-19 [None]
